FAERS Safety Report 8561256 (Version 2)
Quarter: 2013Q2

REPORT INFORMATION
  Report Type: Spontaneous
  Country: JP (occurrence: JP)
  Receive Date: 20120514
  Receipt Date: 20130409
  Transmission Date: 20140414
  Serious: Yes (Hospitalization, Other)
  Sender: FDA-Public Use
  Company Number: JP-PFIZER INC-2012114524

PATIENT
  Age: 55 Year
  Sex: Female

DRUGS (8)
  1. SEIBULE [Suspect]
     Indication: TYPE 2 DIABETES MELLITUS
     Dosage: 25 MG, 3X/DAY
     Route: 048
     Dates: start: 20110106, end: 20110207
  2. SEIBULE [Suspect]
     Dosage: 50 MG, 3X/DAY
     Route: 048
     Dates: start: 20110208, end: 20110419
  3. SEIBULE [Suspect]
     Dosage: 25 MG, 3X/DAY
     Route: 048
     Dates: start: 20110420, end: 20110621
  4. SEIBULE [Suspect]
     Dosage: 50 MG, 3X/DAY
     Route: 048
     Dates: start: 20110622
  5. HUMALOG [Concomitant]
     Dosage: UNK
  6. LANTUS [Concomitant]
     Dosage: UNK
  7. THYRADIN [Concomitant]
     Dosage: UNK
  8. BEZATOL [Concomitant]
     Dosage: UNK

REACTIONS (4)
  - Lymphoma [Unknown]
  - Hypoglycaemia [Recovered/Resolved]
  - Faecal incontinence [Unknown]
  - Diarrhoea [Recovered/Resolved]
